FAERS Safety Report 12965229 (Version 2)
Quarter: 2017Q1

REPORT INFORMATION
  Report Type: Report from Study
  Country: US (occurrence: US)
  Receive Date: 20161122
  Receipt Date: 20170329
  Transmission Date: 20170428
  Serious: Yes (Hospitalization, Other)
  Sender: FDA-Public Use
  Company Number: US-GILEAD-2016-0244496

PATIENT
  Age: 85 Year
  Sex: Female

DRUGS (2)
  1. RANOLAZINE [Suspect]
     Active Substance: RANOLAZINE
     Indication: ANGINA PECTORIS
     Dosage: 500 MG, UNK
     Route: 048
  2. ELIQUIS [Suspect]
     Active Substance: APIXABAN
     Indication: PRODUCT USED FOR UNKNOWN INDICATION
     Dosage: UNK
     Route: 065
     Dates: end: 2017

REACTIONS (3)
  - Intentional underdose [Not Recovered/Not Resolved]
  - Haemorrhage [Unknown]
  - Gastric haemorrhage [Unknown]

NARRATIVE: CASE EVENT DATE: 201611
